FAERS Safety Report 10658244 (Version 1)
Quarter: 2014Q4

REPORT INFORMATION
  Report Type: Spontaneous
  Country: US (occurrence: None)
  Receive Date: 20141205
  Receipt Date: 20141205
  Transmission Date: 20150529
  Serious: Yes (Other)
  Sender: FDA-Public Use
  Company Number: 163-POMAL-14093097

PATIENT
  Age: 62 Year
  Sex: Male

DRUGS (13)
  1. OMEPRAZOLE(OMEPRAZOLE) [Concomitant]
     Active Substance: OMEPRAZOLE
  2. DEXAMETHASONE. [Concomitant]
     Active Substance: DEXAMETHASONE
  3. VITAMIN B12(VITAMIN B NOS) [Concomitant]
  4. POMALYST [Suspect]
     Active Substance: POMALIDOMIDE
     Indication: PLASMA CELL MYELOMA
     Dosage: 4 MG, 21 IN 28 D, PO
     Route: 048
     Dates: start: 20140801, end: 20140825
  5. CALCIUM + VITAMIN D (COLECALCIFEROL, CALCIUM) [Concomitant]
  6. GABAPENTIN(GABAPENTIN) [Concomitant]
  7. IMODIUM(LOPERAMIDE HYDROCHLORIDE) [Concomitant]
  8. ZOMETA(ZOLEDRONIC ACID) [Concomitant]
  9. VITAMIN C [Concomitant]
     Active Substance: ASCORBIC ACID
  10. BACTRIM (SULFAMETHOXAZOLE, TRIMETHOPRIM)(UKNOWN) [Concomitant]
  11. ACYCLOVIR(ACICLOVIR) [Concomitant]
  12. FOLIC ACID(FOLIC ACID) [Concomitant]
  13. COLESTIPOL (COLSTIPOL) [Concomitant]

REACTIONS (2)
  - White blood cell count decreased [None]
  - Neutrophil count decreased [None]

NARRATIVE: CASE EVENT DATE: 20140806
